FAERS Safety Report 20899746 (Version 1)
Quarter: 2022Q2

REPORT INFORMATION
  Report Type: Spontaneous
  Country: FR (occurrence: FR)
  Receive Date: 20220601
  Receipt Date: 20220601
  Transmission Date: 20220720
  Serious: Yes (Death, Hospitalization)
  Sender: FDA-Public Use
  Company Number: FR-STRIDES ARCOLAB LIMITED-2022SP006302

PATIENT
  Age: 32 Year
  Sex: Female

DRUGS (4)
  1. TRAMADOL [Suspect]
     Active Substance: TRAMADOL
     Indication: Depression
     Dosage: 9000 MILLIGRAM (SELF-INGESTED 9000MG SUSTAINED-RELEASE)
     Route: 048
  2. AMITRIPTYLINE [Concomitant]
     Active Substance: AMITRIPTYLINE
     Indication: Depression
     Dosage: UNK
     Route: 065
  3. LORMETAZEPAM [Concomitant]
     Active Substance: LORMETAZEPAM
     Indication: Depression
     Dosage: UNK
     Route: 065
  4. GABAPENTIN [Concomitant]
     Active Substance: GABAPENTIN
     Indication: Depression
     Dosage: UNK
     Route: 065

REACTIONS (6)
  - Brain injury [Fatal]
  - Toxicity to various agents [Fatal]
  - Overdose [Fatal]
  - Intentional product misuse [Fatal]
  - Brain death [Fatal]
  - Off label use [Unknown]
